FAERS Safety Report 15553953 (Version 1)
Quarter: 2018Q4

REPORT INFORMATION
  Report Type: Report from Study
  Country: JP (occurrence: JP)
  Receive Date: 20181026
  Receipt Date: 20181026
  Transmission Date: 20190205
  Serious: Yes (Other)
  Sender: FDA-Public Use
  Company Number: JP-PFIZER INC-2018433898

PATIENT

DRUGS (5)
  1. MIDAZOLAM [Concomitant]
     Active Substance: MIDAZOLAM HYDROCHLORIDE
     Indication: SEDATION
     Dosage: 1 MG, AS NEEDED
     Route: 042
  2. DEXMEDETOMIDINE HYDROCHLORIDE. [Suspect]
     Active Substance: DEXMEDETOMIDINE HYDROCHLORIDE
     Dosage: UNK (0.4-UG/ KG/H INFUSION)
  3. PENTAZOCINE [Concomitant]
     Active Substance: PENTAZOCINE
     Indication: SEDATION
     Dosage: 15 MG, UNK
     Route: 042
  4. PENTAZOCINE [Concomitant]
     Active Substance: PENTAZOCINE
     Dosage: 7.5 OR 15 MG
     Route: 042
  5. DEXMEDETOMIDINE HYDROCHLORIDE. [Suspect]
     Active Substance: DEXMEDETOMIDINE HYDROCHLORIDE
     Indication: SEDATION
     Dosage: UNK (LOADING DOSE OF 6 UG/KG/H OVER 10 MIN)

REACTIONS (1)
  - Pneumonia aspiration [Unknown]
